FAERS Safety Report 19814235 (Version 4)
Quarter: 2023Q2

REPORT INFORMATION
  Report Type: Other
  Country: US (occurrence: None)
  Receive Date: 20210909
  Receipt Date: 20230508
  Transmission Date: 20230721
  Serious: Yes (Other)
  Sender: FDA-Public Use
  Company Number: US-ROCHE-2906917

PATIENT
  Age: 75 Year
  Sex: Female
  Weight: 68.94 kg

DRUGS (2)
  1. ACTEMRA [Suspect]
     Active Substance: TOCILIZUMAB
     Indication: Giant cell arteritis
     Dosage: INJECT 162MG SUBCUTANEOUSLY EVERY WEEK
     Route: 058
  2. ACTEMRA [Suspect]
     Active Substance: TOCILIZUMAB

REACTIONS (4)
  - Fall [Unknown]
  - Upper limb fracture [Unknown]
  - Intervertebral disc protrusion [Unknown]
  - Sciatica [Unknown]

NARRATIVE: CASE EVENT DATE: 20210903
